FAERS Safety Report 4872472-X (Version None)
Quarter: 2005Q4

REPORT INFORMATION
  Report Type: 
  Country: None (occurrence: None)
  Receive Date: 20051201
  Receipt Date: 20050727
  Transmission Date: 20060501
  Serious: No
  Sender: FDA-Public Use
  Company Number: 2005PV000827

PATIENT
  Age: 58 Year
  Sex: Male
  Weight: 117.9352 kg

DRUGS (6)
  1. BYETTA [Suspect]
     Indication: DIABETES MELLITUS NON-INSULIN-DEPENDENT
     Dosage: 5 MCG; BID; SC
     Route: 058
     Dates: start: 20050726
  2. NOVOLOG [Concomitant]
  3. NOVOLIN N [Concomitant]
  4. GLUCOVANCE [Concomitant]
  5. LOPID [Concomitant]
  6. DIOVANE [Concomitant]

REACTIONS (3)
  - BLOOD GLUCOSE INCREASED [None]
  - DRUG INEFFECTIVE [None]
  - WEIGHT DECREASED [None]
